FAERS Safety Report 22606844 (Version 2)
Quarter: 2023Q2

REPORT INFORMATION
  Report Type: Spontaneous
  Country: US (occurrence: US)
  Receive Date: 20230615
  Receipt Date: 20230626
  Transmission Date: 20230722
  Serious: Yes (Other)
  Sender: FDA-Public Use
  Company Number: US-TEVA-2023-US-2895901

PATIENT
  Age: 50 Year
  Sex: Female

DRUGS (8)
  1. CISPLATIN [Suspect]
     Active Substance: CISPLATIN
     Indication: Cholangiocarcinoma
     Route: 065
  2. CISPLATIN [Suspect]
     Active Substance: CISPLATIN
     Indication: Metastasis
  3. GEMCITABINE [Suspect]
     Active Substance: GEMCITABINE
     Indication: Cholangiocarcinoma
     Route: 065
  4. GEMCITABINE [Suspect]
     Active Substance: GEMCITABINE
     Indication: Metastasis
  5. CAPECITABINE [Suspect]
     Active Substance: CAPECITABINE
     Indication: Cholangiocarcinoma
     Dosage: LOW DOSE
     Route: 065
  6. CAPECITABINE [Suspect]
     Active Substance: CAPECITABINE
     Indication: Metastasis
  7. FUTIBATINIB [Suspect]
     Active Substance: FUTIBATINIB
     Indication: Cholangiocarcinoma
     Dosage: RECEIVED FUTIBATINIB FOR 23.6 MONTHS , 20 MG
     Route: 065
  8. FUTIBATINIB [Suspect]
     Active Substance: FUTIBATINIB
     Indication: Metastasis

REACTIONS (5)
  - Drug ineffective [Unknown]
  - Myelodysplastic syndrome [Unknown]
  - Hyperphosphataemia [Recovering/Resolving]
  - Palmar-plantar erythrodysaesthesia syndrome [Unknown]
  - Fatigue [Unknown]
